FAERS Safety Report 5367886-8 (Version None)
Quarter: 2007Q2

REPORT INFORMATION
  Report Type: 
  Country: None (occurrence: None)
  Receive Date: 20070622
  Receipt Date: 20070621
  Transmission Date: 20071010
  Serious: Yes (Death)
  Sender: FDA-Public Use
  Company Number: US-ROXANE LABORATORIES, INC-2007-DE-03718GD

PATIENT
  Sex: Female

DRUGS (1)
  1. MORPHINE [Suspect]
     Indication: PROCEDURAL PAIN
     Dosage: 2 MG BOLUS EVERY 8 MIN WITH 1-MG/H INFUSION

REACTIONS (4)
  - APNOEA [None]
  - MEDICATION ERROR [None]
  - OBSTRUCTIVE AIRWAYS DISORDER [None]
  - PULSE ABSENT [None]
